FAERS Safety Report 12271820 (Version 1)
Quarter: 2016Q2

REPORT INFORMATION
  Report Type: Spontaneous
  Country: JP (occurrence: JP)
  Receive Date: 20160415
  Receipt Date: 20160415
  Transmission Date: 20160815
  Serious: Yes (Other)
  Sender: FDA-Public Use
  Company Number: JP-PFIZER INC-2016202959

PATIENT
  Sex: Female

DRUGS (1)
  1. NASANYL [Suspect]
     Active Substance: NAFARELIN ACETATE
     Indication: UTERINE LEIOMYOMA

REACTIONS (1)
  - Arthropathy [Unknown]
